FAERS Safety Report 5779298-3 (Version None)
Quarter: 2008Q2

REPORT INFORMATION
  Report Type: 
  Country: None (occurrence: None)
  Receive Date: 20080601
  Receipt Date: 20080220
  Transmission Date: 20081010
  Serious: No
  Sender: FDA-Public Use
  Company Number: US200801001019

PATIENT
  Age: 73 Year
  Sex: Male
  Weight: 84.4 kg

DRUGS (7)
  1. BYETTA [Suspect]
     Indication: TYPE 2 DIABETES MELLITUS
     Dosage: 5 UG, 2/D, SUBCUTANEOUS; 5 UG, 2/D, SUBCUTANEOUS
     Route: 058
     Dates: start: 20071201
  2. BYETTA [Suspect]
     Indication: TYPE 2 DIABETES MELLITUS
     Dosage: 5 UG, 2/D, SUBCUTANEOUS; 5 UG, 2/D, SUBCUTANEOUS
     Route: 058
     Dates: start: 20071201
  3. EXENATIDE 5MCG PEN, DISPOSABLE DEVICE [Concomitant]
  4. DRUG USED IN DIABETES [Concomitant]
  5. LEVEMIR (INSULIN DETEMIR) [Concomitant]
  6. ACTOS /USA/ (PIOGLITAZONE HYDROCHLORIDE) [Concomitant]
  7. METFORMIN HCL [Concomitant]

REACTIONS (7)
  - BLOOD GLUCOSE INCREASED [None]
  - DECREASED APPETITE [None]
  - HANGOVER [None]
  - NAUSEA [None]
  - PERSONALITY CHANGE [None]
  - POOR QUALITY SLEEP [None]
  - WEIGHT DECREASED [None]
